FAERS Safety Report 6680968-3 (Version None)
Quarter: 2010Q2

REPORT INFORMATION
  Report Type: 
  Country: None (occurrence: None)
  Receive Date: 20100412
  Receipt Date: 20100330
  Transmission Date: 20101027
  Serious: Yes (Hospitalization)
  Sender: FDA-Public Use
  Company Number: 6059259

PATIENT
  Age: 73 Year
  Sex: Female

DRUGS (4)
  1. LEVOTHYROXINE SODIUM [Suspect]
     Indication: HYPOTHYROIDISM
     Dosage: 1 DF ORAL
     Route: 048
     Dates: end: 20091112
  2. PREVISCAN (FLUINDIONE) [Suspect]
     Indication: ATRIAL FIBRILLATION
     Dosage: 1 DF ORAL
     Route: 048
     Dates: start: 20091020, end: 20091112
  3. CORDARONE [Suspect]
     Indication: ATRIAL FIBRILLATION
     Dosage: 1 DF ORAL
     Route: 048
     Dates: start: 20091001, end: 20091112
  4. CALCIPARINE (HEAPRIN CALCIUM) [Concomitant]

REACTIONS (4)
  - INTERNATIONAL NORMALISED RATIO INCREASED [None]
  - MELAENA [None]
  - OVERDOSE [None]
  - RADIATION OESOPHAGITIS [None]
